FAERS Safety Report 25242887 (Version 4)
Quarter: 2025Q4

REPORT INFORMATION
  Report Type: Report from Study
  Country: US (occurrence: US)
  Receive Date: 20250427
  Receipt Date: 20251214
  Transmission Date: 20260118
  Serious: Yes (Other)
  Sender: ABBVIE
  Company Number: US-ABBVIE-6172084

PATIENT
  Age: 74 Year
  Sex: Male

DRUGS (3)
  1. VENCLEXTA [Suspect]
     Active Substance: VENETOCLAX
     Indication: Acute myelomonocytic leukaemia
     Route: 048
     Dates: start: 202502, end: 2025
  2. VENCLEXTA [Suspect]
     Active Substance: VENETOCLAX
     Indication: Acute myelomonocytic leukaemia
     Route: 048
     Dates: start: 2025
  3. VIDAZA [Concomitant]
     Active Substance: AZACITIDINE
     Indication: Product used for unknown indication

REACTIONS (5)
  - Platelet count decreased [Unknown]
  - White blood cell count abnormal [Unknown]
  - Platelet count decreased [Recovered/Resolved]
  - Pruritus [Unknown]
  - Constipation [Unknown]

NARRATIVE: CASE EVENT DATE: 20250101
